FAERS Safety Report 7189981-3 (Version None)
Quarter: 2010Q4

REPORT INFORMATION
  Report Type: 
  Country: None (occurrence: None)
  Receive Date: 20101213
  Receipt Date: 20101125
  Transmission Date: 20110411
  Serious: Yes (Hospitalization, Other)
  Sender: FDA-Public Use
  Company Number: 2010005080

PATIENT

DRUGS (1)
  1. ERLOTINIB HYDROCHLORIDE [Suspect]
     Indication: HEAD AND NECK CANCER
     Dosage: (150 MG, DAILY), ORAL
     Route: 048

REACTIONS (4)
  - DRUG TOXICITY [None]
  - DYSPHAGIA [None]
  - HAEMORRHAGE [None]
  - PNEUMONIA ASPIRATION [None]
